FAERS Safety Report 12365438 (Version 2)
Quarter: 2016Q3

REPORT INFORMATION
  Report Type: Report from Study
  Country: BR (occurrence: BR)
  Receive Date: 20160512
  Receipt Date: 20160930
  Transmission Date: 20161109
  Serious: Yes (Hospitalization)
  Sender: FDA-Public Use
  Company Number: BR-BIOGEN-2016BI00235292

PATIENT
  Sex: Female

DRUGS (2)
  1. AVONEX [Suspect]
     Active Substance: INTERFERON BETA-1A
     Route: 065
     Dates: start: 201210
  2. AVONEX [Suspect]
     Active Substance: INTERFERON BETA-1A
     Indication: MULTIPLE SCLEROSIS
     Route: 065
     Dates: start: 2011

REACTIONS (17)
  - Multiple sclerosis [Unknown]
  - Feeling abnormal [Unknown]
  - Malaise [Unknown]
  - Nuclear magnetic resonance imaging brain abnormal [Not Recovered/Not Resolved]
  - Feeling cold [Unknown]
  - Anxiety [Unknown]
  - Muscle twitching [Recovered/Resolved]
  - Dizziness [Not Recovered/Not Resolved]
  - Peripheral vascular disorder [Unknown]
  - Hypokinesia [Unknown]
  - Inflammation [Unknown]
  - Abasia [Unknown]
  - Multiple sclerosis relapse [Recovered/Resolved]
  - Pain [Unknown]
  - Paraesthesia [Unknown]
  - Blepharospasm [Recovered/Resolved]
  - Asthenia [Unknown]

NARRATIVE: CASE EVENT DATE: 2014
